FAERS Safety Report 20730880 (Version 1)
Quarter: 2022Q2

REPORT INFORMATION
  Report Type: Spontaneous
  Country: GB (occurrence: GB)
  Receive Date: 20220420
  Receipt Date: 20220420
  Transmission Date: 20220720
  Serious: Yes (Other)
  Sender: FDA-Public Use
  Company Number: GB-BRISTOL-MYERS SQUIBB COMPANY-BMS-2022-038531

PATIENT
  Sex: Female

DRUGS (17)
  1. DASATINIB [Suspect]
     Active Substance: DASATINIB
     Indication: Chronic myeloid leukaemia
     Dosage: 70 MG, QD
     Route: 065
     Dates: start: 20200806
  2. DASATINIB [Suspect]
     Active Substance: DASATINIB
     Dosage: 100 MG, QD
     Route: 065
     Dates: start: 20201016, end: 20201116
  3. DASATINIB [Suspect]
     Active Substance: DASATINIB
     Dosage: 50 MG, QD
     Route: 065
     Dates: start: 20200715
  4. HYDROXYUREA [Suspect]
     Active Substance: HYDROXYUREA
     Indication: Chronic myeloid leukaemia
     Dosage: UNK (1G OD 5/7 AND 0.5G OD 2/7)
     Route: 065
     Dates: start: 20210322, end: 20211116
  5. HYDROXYUREA [Suspect]
     Active Substance: HYDROXYUREA
     Dosage: 0.5 G, QD
     Route: 065
     Dates: start: 20210311
  6. ANAGRELIDE [Suspect]
     Active Substance: ANAGRELIDE
     Indication: Product used for unknown indication
     Dosage: 0.5 MG, QD
     Route: 065
     Dates: start: 20210624
  7. ASCIMINIB [Suspect]
     Active Substance: ASCIMINIB
     Indication: Product used for unknown indication
     Dosage: 40 MG, BID
     Route: 065
  8. BOSUTINIB [Suspect]
     Active Substance: BOSUTINIB
     Indication: Chronic myeloid leukaemia
     Dosage: 500 MG, QD
     Route: 065
     Dates: start: 20200305, end: 20200305
  9. BOSUTINIB [Suspect]
     Active Substance: BOSUTINIB
     Dosage: 300 MG, QD
     Route: 065
     Dates: start: 20180423
  10. BOSUTINIB [Suspect]
     Active Substance: BOSUTINIB
     Dosage: 200 MG, QD
     Route: 065
     Dates: start: 20180329
  11. BOSUTINIB [Suspect]
     Active Substance: BOSUTINIB
     Dosage: 400 MG, QD
     Route: 065
     Dates: start: 20200224
  12. IMATINIB [Suspect]
     Active Substance: IMATINIB
     Indication: Chronic myeloid leukaemia
     Dosage: 300 MG, QD
     Route: 065
     Dates: start: 20160620, end: 20180215
  13. PONATINIB [Suspect]
     Active Substance: PONATINIB
     Indication: Product used for unknown indication
     Dosage: 45 MG, QD
     Route: 065
     Dates: start: 20210225
  14. PONATINIB [Suspect]
     Active Substance: PONATINIB
     Dosage: 30 MG, QD
     Route: 065
     Dates: start: 20210204
  15. PONATINIB [Suspect]
     Active Substance: PONATINIB
     Dosage: 15 MG, QD
     Route: 065
     Dates: start: 202201
  16. PONATINIB [Suspect]
     Active Substance: PONATINIB
     Dosage: 45 MG, QD
     Route: 065
     Dates: start: 20210322, end: 20210506
  17. PONATINIB [Suspect]
     Active Substance: PONATINIB
     Dosage: 30 MG, QD
     Route: 065
     Dates: start: 20210624

REACTIONS (4)
  - Fatigue [Not Recovered/Not Resolved]
  - Drug intolerance [Not Recovered/Not Resolved]
  - Drug resistance [Not Recovered/Not Resolved]
  - Weight increased [Not Recovered/Not Resolved]
